FAERS Safety Report 4573814-5 (Version None)
Quarter: 2005Q1

REPORT INFORMATION
  Report Type: 
  Country: None (occurrence: None)
  Receive Date: 20050203
  Receipt Date: 20050126
  Transmission Date: 20050727
  Serious: Yes (Death)
  Sender: FDA-Public Use
  Company Number: 2005-00318

PATIENT
  Age: 79 Year
  Sex: Male

DRUGS (2)
  1. OXYTROL [Suspect]
     Dosage: 1 PATCH, 2/WEEK X 3 PATCHES, TRANSDERMAL
     Route: 062
     Dates: end: 20040101
  2. LASIX [Concomitant]

REACTIONS (1)
  - CARDIAC FAILURE CONGESTIVE [None]
